FAERS Safety Report 7651083-7 (Version None)
Quarter: 2011Q3

REPORT INFORMATION
  Report Type: 
  Country: None (occurrence: None)
  Receive Date: 20110802
  Receipt Date: 20110620
  Transmission Date: 20111222
  Serious: Yes (Death, Other)
  Sender: FDA-Public Use
  Company Number: PHHY2011JP54931

PATIENT
  Sex: Female

DRUGS (2)
  1. SIMULECT [Suspect]
     Dosage: 10 MG
     Route: 042
     Dates: start: 20080920, end: 20080920
  2. SIMULECT [Suspect]
     Indication: RENAL TRANSPLANT
     Dosage: 10 MG
     Route: 042
     Dates: start: 20080916, end: 20080916

REACTIONS (5)
  - CEREBRAL HAEMORRHAGE [None]
  - HEPATIC NECROSIS [None]
  - PERITONITIS SCLEROSING [None]
  - GASTROINTESTINAL HAEMORRHAGE [None]
  - INFECTION [None]
